FAERS Safety Report 8078162-7 (Version None)
Quarter: 2012Q1

REPORT INFORMATION
  Report Type: 
  Country: None (occurrence: None)
  Receive Date: 20120127
  Receipt Date: 20110405
  Transmission Date: 20120608
  Serious: No
  Sender: FDA-Public Use
  Company Number: US-BAUSCH-2011BL002264

PATIENT
  Age: 58 Year
  Sex: Female

DRUGS (2)
  1. ZYLET [Suspect]
     Indication: DRY EYE
     Route: 047
     Dates: start: 20110301
  2. ZYLET [Suspect]
     Indication: EYE INFLAMMATION
     Route: 047
     Dates: start: 20110301

REACTIONS (1)
  - INSTILLATION SITE PAIN [None]
